FAERS Safety Report 9375023 (Version 1)
Quarter: 2013Q2

REPORT INFORMATION
  Report Type: Spontaneous
  Country: JP (occurrence: JP)
  Receive Date: 20130628
  Receipt Date: 20130628
  Transmission Date: 20140414
  Serious: Yes (Hospitalization)
  Sender: FDA-Public Use
  Company Number: JP-GENZYME-POMP-1003089

PATIENT
  Age: 46 Year
  Sex: Male

DRUGS (1)
  1. MYOZYME [Suspect]
     Indication: GLYCOGEN STORAGE DISEASE TYPE II
     Dosage: 1200 MG, UNK

REACTIONS (3)
  - Brain contusion [Recovered/Resolved]
  - Subdural haematoma [Recovered/Resolved]
  - Subarachnoid haemorrhage [Recovered/Resolved]
